FAERS Safety Report 13044243 (Version 1)
Quarter: 2016Q4

REPORT INFORMATION
  Report Type: Spontaneous
  Country: US (occurrence: US)
  Receive Date: 20161220
  Receipt Date: 20161220
  Transmission Date: 20170207
  Serious: No
  Sender: FDA-Public Use
  Company Number: US-ROCHE-1034171

PATIENT
  Age: 72 Year
  Sex: Male
  Weight: 186 kg

DRUGS (2)
  1. ZELBORAF [Suspect]
     Active Substance: VEMURAFENIB
     Indication: METASTATIC MALIGNANT MELANOMA
     Route: 048
     Dates: start: 201202
  2. MULTIVITAMIN [Concomitant]
     Active Substance: VITAMINS
     Dosage: DOSE REPORTED:1
     Route: 048

REACTIONS (8)
  - Hyperkeratosis [Unknown]
  - Erythema [Unknown]
  - Skin papilloma [Unknown]
  - Rash [Not Recovered/Not Resolved]
  - Weight decreased [Unknown]
  - Squamous cell carcinoma of skin [Recovered/Resolved]
  - Dry skin [Unknown]
  - Alopecia [Unknown]

NARRATIVE: CASE EVENT DATE: 201203
